FAERS Safety Report 4857313-9 (Version None)
Quarter: 2005Q4

REPORT INFORMATION
  Report Type: 
  Country: None (occurrence: None)
  Receive Date: 20051219
  Receipt Date: 20050726
  Transmission Date: 20060501
  Serious: No
  Sender: FDA-Public Use
  Company Number: US-GLAXOSMITHKLINE-A0567685A

PATIENT
  Age: 23 Year
  Sex: Male

DRUGS (1)
  1. NICODERM CQ [Suspect]
     Dates: start: 20050724

REACTIONS (4)
  - ANGER [None]
  - ANXIETY [None]
  - PAIN [None]
  - PAIN IN EXTREMITY [None]
